FAERS Safety Report 4993105-8 (Version None)
Quarter: 2006Q1

REPORT INFORMATION
  Report Type: 
  Country: None (occurrence: None)
  Receive Date: 20060313
  Receipt Date: 20051202
  Transmission Date: 20060701
  Serious: No
  Sender: FDA-Public Use
  Company Number: 2005-BP-20954BP

PATIENT
  Sex: Female

DRUGS (13)
  1. SPIRIVA [Suspect]
     Indication: CHRONIC OBSTRUCTIVE PULMONARY DISEASE
     Dosage: 18 MCG (18 MCG), IH
     Route: 055
     Dates: start: 20041201
  2. ADVAIR (SERETIDE) [Concomitant]
  3. PRAVACHOL [Concomitant]
  4. ZETIA [Concomitant]
  5. TRICOR [Concomitant]
  6. ATENOLOL [Concomitant]
  7. ZESTRIL [Concomitant]
  8. LASIX [Concomitant]
  9. POTASSIUM CHLORIDE [Concomitant]
  10. FOSAMAX [Concomitant]
  11. OSCAL [Concomitant]
  12. MTV (MTV) [Concomitant]
  13. OCUVITE [Concomitant]

REACTIONS (3)
  - ARTHRALGIA [None]
  - GROIN PAIN [None]
  - PAIN IN EXTREMITY [None]
